FAERS Safety Report 5064080-5 (Version None)
Quarter: 2006Q3

REPORT INFORMATION
  Report Type: 
  Country: None (occurrence: None)
  Receive Date: 20060706
  Receipt Date: 20060313
  Transmission Date: 20061208
  Serious: No
  Sender: FDA-Public Use
  Company Number: 200611426BWH

PATIENT
  Age: 74 Year
  Sex: Male

DRUGS (11)
  1. LEVITRA [Suspect]
     Indication: ERECTILE DYSFUNCTION
     Dosage: 20 MG, TOTAL DAILY, ORAL
     Route: 048
  2. LEVITRA [Suspect]
     Indication: ERECTILE DYSFUNCTION
     Dosage: 20 MG, TOTAL DAILY, ORAL
     Route: 048
  3. DILTIAZEM HCL [Concomitant]
  4. LOTENSIN [Concomitant]
  5. LOZOL [Concomitant]
  6. LIPITOR [Concomitant]
  7. ALLOPURINOL [Concomitant]
  8. POTASSIUM [Concomitant]
  9. GREEN TEA [Concomitant]
  10. SAW PALMETTO [Concomitant]
  11. COENZYME Q10 [Concomitant]

REACTIONS (2)
  - ERECTILE DYSFUNCTION [None]
  - SENSATION OF BLOOD FLOW [None]
